FAERS Safety Report 5513725-1 (Version None)
Quarter: 2007Q4

REPORT INFORMATION
  Report Type: 
  Country: None (occurrence: None)
  Receive Date: 20071113
  Receipt Date: 20071102
  Transmission Date: 20080405
  Serious: Yes (Hospitalization, Disabling)
  Sender: FDA-Public Use
  Company Number: PHHO2007TW15944

PATIENT
  Age: 61 Year
  Sex: Male
  Weight: 72 kg

DRUGS (1)
  1. AMN107 [Suspect]
     Indication: CHRONIC MYELOID LEUKAEMIA
     Dosage: 800MG DAILY
     Route: 048
     Dates: start: 20070503, end: 20070926

REACTIONS (8)
  - BRAIN OEDEMA [None]
  - CEREBRAL ISCHAEMIA [None]
  - CONCOMITANT DISEASE PROGRESSION [None]
  - DIABETES MELLITUS [None]
  - HEMIPARESIS [None]
  - PYREXIA [None]
  - STAPHYLOCOCCAL INFECTION [None]
  - THROMBOCYTHAEMIA [None]
